FAERS Safety Report 13065770 (Version 2)
Quarter: 2017Q1

REPORT INFORMATION
  Report Type: Spontaneous
  Country: US (occurrence: US)
  Receive Date: 20161227
  Receipt Date: 20170316
  Transmission Date: 20170428
  Serious: Yes (Hospitalization, Other)
  Sender: FDA-Public Use
  Company Number: US-PFIZER INC-2016585395

PATIENT
  Sex: Female

DRUGS (1)
  1. LYRICA [Suspect]
     Active Substance: PREGABALIN
     Dosage: UNK
     Dates: end: 201612

REACTIONS (15)
  - Cardiac disorder [Unknown]
  - Intentional product use issue [Unknown]
  - Panic attack [Unknown]
  - Apparent death [Unknown]
  - Movement disorder [Unknown]
  - Intentional self-injury [Unknown]
  - Migraine [Unknown]
  - Stress [Unknown]
  - Malaise [Unknown]
  - Angina pectoris [Unknown]
  - Suicidal ideation [Unknown]
  - Pain [Unknown]
  - Emotional disorder [Unknown]
  - Drug withdrawal syndrome [Unknown]
  - Diarrhoea [Unknown]

NARRATIVE: CASE EVENT DATE: 201701
